FAERS Safety Report 8329344-8 (Version None)
Quarter: 2012Q2

REPORT INFORMATION
  Report Type: 
  Country: None (occurrence: None)
  Receive Date: 20120502
  Receipt Date: 20110214
  Transmission Date: 20120825
  Serious: No
  Sender: FDA-Public Use
  Company Number: US-ASTRAZENECA-2011SE08586

PATIENT
  Age: 56 Year
  Sex: Female

DRUGS (4)
  1. FASLODEX [Suspect]
     Route: 030
     Dates: start: 20110124, end: 20110124
  2. FASLODEX [Suspect]
     Indication: BREAST CANCER METASTATIC
     Route: 030
     Dates: start: 20110103, end: 20110103
  3. ATENOLOL [Concomitant]
     Indication: HYPERTENSION
  4. VITAMIN TAB [Concomitant]

REACTIONS (1)
  - BLOOD CALCIUM INCREASED [None]
